FAERS Safety Report 5505418-1 (Version None)
Quarter: 2007Q4

REPORT INFORMATION
  Report Type: 
  Country: None (occurrence: None)
  Receive Date: 20071030
  Receipt Date: 20070920
  Transmission Date: 20080405
  Serious: No
  Sender: FDA-Public Use
  Company Number: 267758

PATIENT
  Age: 69 Year
  Sex: Male

DRUGS (3)
  1. LEVEMIR [Suspect]
     Indication: DIABETES MELLITUS
     Dosage: 23 IU, QD, SUBCUTANEOUS
     Route: 058
  2. LEVEMIR [Suspect]
  3. VERAPAMIL [Concomitant]

REACTIONS (1)
  - BLOOD GLUCOSE INCREASED [None]
